FAERS Safety Report 16427862 (Version 1)
Quarter: 2019Q2

REPORT INFORMATION
  Report Type: Spontaneous
  Country: CA (occurrence: CA)
  Receive Date: 20190613
  Receipt Date: 20190613
  Transmission Date: 20190711
  Serious: Yes (Death, Life-Threatening, Hospitalization)
  Sender: FDA-Public Use
  Company Number: CA-ELI_LILLY_AND_COMPANY-CA201906003835

PATIENT
  Age: 57 Year
  Sex: Male
  Weight: 118 kg

DRUGS (5)
  1. ABILIFY [Concomitant]
     Active Substance: ARIPIPRAZOLE
  2. AMLODIPINE [Concomitant]
     Active Substance: AMLODIPINE BESYLATE
  3. LAMOTRIGINE. [Concomitant]
     Active Substance: LAMOTRIGINE
  4. CYMBALTA [Suspect]
     Active Substance: DULOXETINE HYDROCHLORIDE
     Indication: DEPRESSION
     Dosage: 90 MG, DAILY
     Route: 048
  5. CLONAZEPAM. [Concomitant]
     Active Substance: CLONAZEPAM

REACTIONS (9)
  - Anxiety [Fatal]
  - Agitation [Fatal]
  - Depression [Fatal]
  - Restless legs syndrome [Fatal]
  - Obsessive-compulsive disorder [Fatal]
  - Restlessness [Fatal]
  - Insomnia [Fatal]
  - Cerebral disorder [Fatal]
  - Suicidal ideation [Fatal]
